FAERS Safety Report 16014701 (Version 1)
Quarter: 2019Q1

REPORT INFORMATION
  Report Type: Spontaneous
  Country: PT (occurrence: PT)
  Receive Date: 20190227
  Receipt Date: 20190227
  Transmission Date: 20190418
  Serious: Yes (Other)
  Sender: FDA-Public Use
  Company Number: PHHY2019PT039441

PATIENT
  Age: 57 Year
  Sex: Female

DRUGS (1)
  1. LATANOPROST+TIMOLOL SANDOZ [Suspect]
     Active Substance: LATANOPROST\TIMOLOL
     Indication: INTRAOCULAR PRESSURE INCREASED
     Route: 065

REACTIONS (2)
  - Intraocular pressure increased [Unknown]
  - Visual impairment [Unknown]

NARRATIVE: CASE EVENT DATE: 2009
